FAERS Safety Report 8101270-9 (Version None)
Quarter: 2012Q1

REPORT INFORMATION
  Report Type: 
  Country: None (occurrence: None)
  Receive Date: 20120129
  Receipt Date: 20110928
  Transmission Date: 20120608
  Serious: No
  Sender: FDA-Public Use
  Company Number: US-ABBOTT-11P-163-0858939-00

PATIENT
  Age: 31 Year
  Sex: Male

DRUGS (5)
  1. HUMIRA [Suspect]
     Indication: PSORIASIS
     Dates: start: 20100801
  2. CLOBETASOL [Concomitant]
     Indication: PSORIASIS
  3. MULTI-VITAMINS [Concomitant]
     Indication: VITAMIN SUPPLEMENTATION
     Dosage: ONCE DAILY
     Route: 048
  4. NAPROXEN (ALEVE) [Concomitant]
     Indication: BACK PAIN
     Dosage: 1PRN
  5. LORATADINE [Concomitant]
     Indication: HYPERSENSITIVITY
     Route: 048

REACTIONS (2)
  - DRUG DOSE OMISSION [None]
  - PSORIASIS [None]
